FAERS Safety Report 5716371-X (Version None)
Quarter: 2008Q2

REPORT INFORMATION
  Report Type: 
  Country: None (occurrence: None)
  Receive Date: 20080422
  Receipt Date: 20080411
  Transmission Date: 20081010
  Serious: Yes (Death, Other)
  Sender: FDA-Public Use
  Company Number: GXKR2008DK02459

PATIENT
  Age: 37 Year
  Sex: Female
  Weight: 94 kg

DRUGS (6)
  1. CITALOPRAM HYDROBROMIDE [Suspect]
     Indication: DEPRESSION
     Dosage: 60 MG QD ORAL
     Route: 048
     Dates: start: 20010601, end: 20030101
  2. CITALOPRAM HYDROBROMIDE [Suspect]
     Indication: DEPRESSION
     Dosage: 60 MG QD ORAL
     Route: 048
     Dates: start: 20030101
  3. QUETIAPINE FUMARATE [Suspect]
     Indication: MENTAL DISORDER
     Dosage: 100 MG QD ORAL
     Route: 048
     Dates: start: 20030101
  4. DELEPSINE (VALPROATE SODIUM) GASTRO-RESISTANT TABLET [Suspect]
     Indication: EPILEPSY
     Dosage: 1000 MG QD ORAL
     Route: 048
     Dates: start: 20030101
  5. LAMICTAL [Suspect]
     Dosage: 350 MG QD ORAL
     Route: 048
     Dates: start: 20030101
  6. MINULET (ETHINYLESTRADIOL, GESTODENE) COATED TABLET [Suspect]
     Indication: CONTRACEPTION
     Dosage: 1 DF QD ORAL
     Route: 048
     Dates: start: 20030101

REACTIONS (8)
  - ANTIDEPRESSANT DRUG LEVEL ABOVE THERAPEUTIC [None]
  - DRUG INTERACTION [None]
  - DRUG TOXICITY [None]
  - ENCEPHALITIS [None]
  - MALAISE [None]
  - PALPITATIONS [None]
  - SINUS TACHYCARDIA [None]
  - THYROIDITIS [None]
